FAERS Safety Report 10038818 (Version 1)
Quarter: 2014Q1

REPORT INFORMATION
  Report Type: Spontaneous
  Country: US (occurrence: US)
  Receive Date: 20140326
  Receipt Date: 20140326
  Transmission Date: 20141002
  Serious: Yes (Other)
  Sender: FDA-Public Use
  Company Number: US-ACTAVIS-2014-05341

PATIENT
  Age: 53 Year
  Sex: Female
  Weight: 109 kg

DRUGS (3)
  1. HYDROCODONE BITARTRATE/ACETAMINOPHEN 10/325 MG (WATSON LABORATORIES) [Suspect]
     Indication: PAIN
     Dosage: 1.5 DF, Q4H
     Route: 048
     Dates: start: 20140311, end: 20140312
  2. HYDROCODONE BITARTRATE/ACETAMINOPHEN 10/325 MG (WATSON LABORATORIES) [Suspect]
     Dosage: UNK UNK, Q4H
     Route: 048
     Dates: start: 20140228
  3. LASIX                              /00032601/ [Concomitant]
     Indication: FLUID RETENTION
     Dosage: 1 DF, DAILY
     Route: 048

REACTIONS (3)
  - Hallucination, auditory [Not Recovered/Not Resolved]
  - Drug ineffective [Not Recovered/Not Resolved]
  - Somnolence [Not Recovered/Not Resolved]
